FAERS Safety Report 7451074-5 (Version None)
Quarter: 2011Q2

REPORT INFORMATION
  Report Type: 
  Country: None (occurrence: None)
  Receive Date: 20110422
  Receipt Date: 20110411
  Transmission Date: 20111010
  Serious: Yes (Other)
  Sender: FDA-Public Use
  Company Number: 2011SP001163

PATIENT
  Sex: Female

DRUGS (3)
  1. LATUDA [Suspect]
     Dosage: 40 MG; QD; ORAL
     Route: 048
     Dates: start: 20110404, end: 20110401
  2. TRAZODONE HCL [Suspect]
     Dosage: 50 MG; HS
     Dates: start: 20110401
  3. ZYPREXA [Suspect]
     Dosage: 10 MG; ORAL
     Route: 048
     Dates: start: 20110401, end: 20110401

REACTIONS (3)
  - SWOLLEN TONGUE [None]
  - DYSPNOEA [None]
  - NAUSEA [None]
